FAERS Safety Report 14683272 (Version 1)
Quarter: 2018Q1

REPORT INFORMATION
  Report Type: Spontaneous
  Country: FR (occurrence: FR)
  Receive Date: 20180327
  Receipt Date: 20180327
  Transmission Date: 20180509
  Serious: Yes (Other)
  Sender: FDA-Public Use
  Company Number: FR-MERCK KGAA-2044584

PATIENT
  Age: 35 Year
  Sex: Female
  Weight: 69 kg

DRUGS (4)
  1. NOVOTHYROX [Suspect]
     Active Substance: LEVOTHYROXINE SODIUM
  2. NOVOTHYROX [Suspect]
     Active Substance: LEVOTHYROXINE SODIUM
     Dates: start: 2017
  3. NOVOTHYROX [Suspect]
     Active Substance: LEVOTHYROXINE SODIUM
     Indication: HYPOTHYROIDISM
  4. NOVOTHYROX [Suspect]
     Active Substance: LEVOTHYROXINE SODIUM

REACTIONS (28)
  - Nausea [Recovered/Resolved]
  - Myalgia [Recovered/Resolved]
  - Feeling abnormal [Recovered/Resolved]
  - Major depression [Recovered/Resolved]
  - Memory impairment [Recovered/Resolved]
  - Impatience [Recovered/Resolved]
  - Pain [Recovered/Resolved]
  - Somnolence [Recovered/Resolved]
  - Dizziness [Recovered/Resolved]
  - Social avoidant behaviour [Recovered/Resolved]
  - Affect lability [Recovered/Resolved]
  - Dyspnoea [Recovered/Resolved]
  - Weight increased [Recovered/Resolved]
  - Apathy [Recovered/Resolved]
  - Walking disability [Recovered/Resolved]
  - Blood thyroid stimulating hormone increased [None]
  - Fatigue [Recovered/Resolved]
  - Mood swings [Recovered/Resolved]
  - Anger [Recovered/Resolved]
  - Aspartate aminotransferase increased [None]
  - Mental impairment [Recovered/Resolved]
  - Alopecia [Recovered/Resolved]
  - Tachycardia [Recovered/Resolved]
  - Impaired work ability [Recovered/Resolved]
  - Disturbance in attention [Recovered/Resolved]
  - Decreased interest [Recovered/Resolved]
  - Asthenia [Recovered/Resolved]
  - Amnesia [Recovered/Resolved]

NARRATIVE: CASE EVENT DATE: 201704
